FAERS Safety Report 14997734 (Version 6)
Quarter: 2019Q4

REPORT INFORMATION
  Report Type: Report from Study
  Country: None (occurrence: NL)
  Receive Date: 20180611
  Receipt Date: 20191003
  Transmission Date: 20200122
  Serious: No
  Sender: FDA-Public Use
  Company Number: NL-ABBVIE-18K-114-2382356-00

PATIENT
  Age: 81 Year
  Sex: Male
  Weight: 85 kg

DRUGS (3)
  1. DUODOPA [Suspect]
     Active Substance: CARBIDOPA\LEVODOPA
     Dosage: MD: 10.5, CD: 4.1, ED: 3.5
     Route: 050
  2. DUODOPA [Suspect]
     Active Substance: CARBIDOPA\LEVODOPA
     Route: 050
  3. DUODOPA [Suspect]
     Active Substance: CARBIDOPA\LEVODOPA
     Indication: PARKINSON^S DISEASE
     Dosage: MD:10.5, CD:4.1, ED:3.5?16 HOUR ADMINISTRATION
     Route: 050
     Dates: start: 20100519

REACTIONS (17)
  - Communication disorder [Not Recovered/Not Resolved]
  - Stoma site discharge [Not Recovered/Not Resolved]
  - Appetite disorder [Not Recovered/Not Resolved]
  - Dyskinesia [Not Recovered/Not Resolved]
  - Nocturia [Recovered/Resolved]
  - Pain [Not Recovered/Not Resolved]
  - Abnormal faeces [Recovered/Resolved]
  - Emotional disorder [Not Recovered/Not Resolved]
  - Tremor [Not Recovered/Not Resolved]
  - Stoma site pain [Not Recovered/Not Resolved]
  - Sleep disorder [Unknown]
  - Device physical property issue [Unknown]
  - Weight decreased [Recovered/Resolved]
  - Therapeutic product effect incomplete [Not Recovered/Not Resolved]
  - Abnormal dreams [Not Recovered/Not Resolved]
  - Stoma site erythema [Not Recovered/Not Resolved]
  - Stoma site inflammation [Recovered/Resolved]

NARRATIVE: CASE EVENT DATE: 20180606
